FAERS Safety Report 18682264 (Version 2)
Quarter: 2021Q3

REPORT INFORMATION
  Report Type: Spontaneous
  Country: US (occurrence: US)
  Receive Date: 20201230
  Receipt Date: 20210930
  Transmission Date: 20211014
  Serious: No
  Sender: FDA-Public Use
  Company Number: US-SA-2020SA375490

PATIENT
  Age: 73 Year
  Sex: Female

DRUGS (3)
  1. DUPIXENT [Suspect]
     Active Substance: DUPILUMAB
     Indication: NASAL POLYPS
     Dosage: 600 MG, 1X
     Route: 058
     Dates: start: 20201221, end: 20201221
  2. DUPIXENT [Suspect]
     Active Substance: DUPILUMAB
     Indication: ASTHMA
  3. DUPIXENT [Suspect]
     Active Substance: DUPILUMAB
     Indication: DERMATITIS
     Dosage: 300 MG, QOW
     Route: 058

REACTIONS (5)
  - Product use issue [Unknown]
  - Muscle tightness [Not Recovered/Not Resolved]
  - Trismus [Not Recovered/Not Resolved]
  - Therapeutic response decreased [Unknown]
  - Jaw disorder [Not Recovered/Not Resolved]

NARRATIVE: CASE EVENT DATE: 20201221
